FAERS Safety Report 11363346 (Version 1)
Quarter: 2015Q3

REPORT INFORMATION
  Report Type: Spontaneous
  Country: US (occurrence: US)
  Receive Date: 20150811
  Receipt Date: 20150811
  Transmission Date: 20151125
  Serious: No
  Sender: FDA-Public Use
  Company Number: US-009507513-1508USA001388

PATIENT
  Age: 14 Year
  Sex: Female
  Weight: 52.15 kg

DRUGS (1)
  1. NEXPLANON [Suspect]
     Active Substance: ETONOGESTREL
     Indication: CONTRACEPTION
     Dosage: 3 YEARS
     Route: 059
     Dates: start: 20150527

REACTIONS (4)
  - Vaginal haemorrhage [Unknown]
  - Anger [Unknown]
  - Menorrhagia [Unknown]
  - Mood altered [Unknown]

NARRATIVE: CASE EVENT DATE: 2015
